FAERS Safety Report 22100436 (Version 1)
Quarter: 2023Q1

REPORT INFORMATION
  Report Type: Spontaneous
  Country: DE (occurrence: DE)
  Receive Date: 20230316
  Receipt Date: 20230316
  Transmission Date: 20230417
  Serious: Yes (Other)
  Sender: FDA-Public Use
  Company Number: DE-DAIICHI SANKYO EUROPE GMBH-DSE-2023-108997

PATIENT
  Age: 75 Year
  Sex: Female

DRUGS (2)
  1. BEMPEDOIC ACID\EZETIMIBE [Suspect]
     Active Substance: BEMPEDOIC ACID\EZETIMIBE
     Indication: Lipids increased
     Dosage: UNK
     Route: 065
  2. BEMPEDOIC ACID [Suspect]
     Active Substance: BEMPEDOIC ACID
     Indication: Lipids increased
     Dosage: UNK
     Route: 065

REACTIONS (1)
  - Blood pressure abnormal [Recovered/Resolved]
